FAERS Safety Report 17196173 (Version 1)
Quarter: 2019Q4

REPORT INFORMATION
  Report Type: Spontaneous
  Country: US (occurrence: US)
  Receive Date: 20191224
  Receipt Date: 20191224
  Transmission Date: 20200122
  Serious: No
  Sender: FDA-Public Use
  Company Number: US-TEVA-2019-US-1158732

PATIENT
  Age: 56 Year
  Sex: Male

DRUGS (1)
  1. AUTOJECT 2 (GLATIRAMER ACETATE) [Suspect]
     Active Substance: GLATIRAMER ACETATE
     Dosage: FORM STRENGTH: UNKNOWN
     Route: 065

REACTIONS (3)
  - Urticaria [Unknown]
  - Contusion [Unknown]
  - Erythema [Unknown]
